FAERS Safety Report 14839176 (Version 3)
Quarter: 2018Q2

REPORT INFORMATION
  Report Type: Spontaneous
  Country: US (occurrence: US)
  Receive Date: 20180502
  Receipt Date: 20180509
  Transmission Date: 20180711
  Serious: No
  Sender: FDA-Public Use
  Company Number: US-009507513-1804USA009553

PATIENT
  Age: 31 Year
  Sex: Female

DRUGS (5)
  1. VALIUM [Concomitant]
     Active Substance: DIAZEPAM
  2. NEXPLANON [Suspect]
     Active Substance: ETONOGESTREL
     Indication: MENSTRUAL CYCLE MANAGEMENT
  3. SEROQUEL [Concomitant]
     Active Substance: QUETIAPINE FUMARATE
  4. AMBIEN [Concomitant]
     Active Substance: ZOLPIDEM TARTRATE
  5. NEXPLANON [Suspect]
     Active Substance: ETONOGESTREL
     Indication: CONTRACEPTION
     Dosage: 1 DOSE FORM, RIGHT ARM, EVERY 3 YEARS
     Route: 059
     Dates: start: 20140327

REACTIONS (7)
  - Fall [Unknown]
  - Incorrect drug administration duration [Unknown]
  - Product use in unapproved indication [Unknown]
  - Implant site erythema [Unknown]
  - Device kink [Unknown]
  - Implant site swelling [Unknown]
  - Implant site bruising [Unknown]

NARRATIVE: CASE EVENT DATE: 20140327
